FAERS Safety Report 4650138-9 (Version None)
Quarter: 2005Q2

REPORT INFORMATION
  Report Type: 
  Country: None (occurrence: None)
  Receive Date: 20050428
  Receipt Date: 20050422
  Transmission Date: 20051028
  Serious: Yes (Other)
  Sender: FDA-Public Use
  Company Number: 200510292BVD

PATIENT

DRUGS (1)
  1. MOXIFLOXACIN HCL [Suspect]
     Dosage: 400 MG, TOTAL DAILY, ORAL
     Route: 048

REACTIONS (1)
  - CORNEAL DEPOSITS [None]
